FAERS Safety Report 21260061 (Version 1)
Quarter: 2022Q3

REPORT INFORMATION
  Report Type: Spontaneous
  Country: US (occurrence: None)
  Receive Date: 20220825
  Receipt Date: 20220825
  Transmission Date: 20221027
  Serious: Yes (Other)
  Sender: FDA-Public Use
  Company Number: None

PATIENT
  Age: 25 Year
  Sex: Female
  Weight: 67 kg

DRUGS (1)
  1. DEXTROAMPHET SACCHARAT, AMPHET ASPARTATE, DEXTROAMPHET SULFATE AND AMP [Suspect]
     Active Substance: AMPHETAMINE ASPARTATE\AMPHETAMINE SULFATE\DEXTROAMPHETAMINE SACCHARATE\DEXTROAMPHETAMINE SULFATE
     Indication: Attention deficit hyperactivity disorder
     Dosage: OTHER QUANTITY : 42 TABLET(S);?FREQUENCY : TWICE A DAY;?
     Route: 048
     Dates: start: 20220825, end: 20220825

REACTIONS (14)
  - Tremor [None]
  - Panic attack [None]
  - Muscular weakness [None]
  - Anger [None]
  - Confusional state [None]
  - Dizziness [None]
  - Nausea [None]
  - Hyperhidrosis [None]
  - Dyspnoea [None]
  - Thinking abnormal [None]
  - Vision blurred [None]
  - Feeling drunk [None]
  - Eyelid irritation [None]
  - Fear [None]

NARRATIVE: CASE EVENT DATE: 20220825
